FAERS Safety Report 17161055 (Version 3)
Quarter: 2021Q1

REPORT INFORMATION
  Report Type: Spontaneous
  Country: HU (occurrence: HU)
  Receive Date: 20191216
  Receipt Date: 20210302
  Transmission Date: 20210419
  Serious: Yes (Other)
  Sender: FDA-Public Use
  Company Number: HU-BAUSCH-BL-2019-065182

PATIENT
  Age: 59 Year
  Sex: Male

DRUGS (11)
  1. AMOXICILLIN. [Suspect]
     Active Substance: AMOXICILLIN
     Indication: PRODUCT USED FOR UNKNOWN INDICATION
     Route: 048
  2. TAFINLAR [Suspect]
     Active Substance: DABRAFENIB MESYLATE
     Indication: PRODUCT USED FOR UNKNOWN INDICATION
     Route: 065
     Dates: end: 20190716
  3. TRAMETINIB [Suspect]
     Active Substance: TRAMETINIB
     Route: 065
     Dates: start: 20190729
  4. TRAMETINIB [Suspect]
     Active Substance: TRAMETINIB
     Indication: PRODUCT USED FOR UNKNOWN INDICATION
     Route: 065
     Dates: start: 20190313
  5. DICLOFENAC [Suspect]
     Active Substance: DICLOFENAC
     Indication: PRODUCT USED FOR UNKNOWN INDICATION
     Route: 065
     Dates: start: 20181019
  6. CEFTRIAXON [Suspect]
     Active Substance: CEFTRIAXONE
     Indication: PRODUCT USED FOR UNKNOWN INDICATION
     Route: 065
  7. AMOXICILLIN. [Suspect]
     Active Substance: AMOXICILLIN
     Route: 042
  8. DABRAFENIB [Suspect]
     Active Substance: DABRAFENIB
     Indication: PRODUCT USED FOR UNKNOWN INDICATION
     Route: 065
     Dates: start: 20190313
  9. METRONIDAZOLE. [Suspect]
     Active Substance: METRONIDAZOLE
     Indication: PRODUCT USED FOR UNKNOWN INDICATION
     Route: 065
     Dates: start: 20190703
  10. MEKINIST [Suspect]
     Active Substance: TRAMETINIB DIMETHYL SULFOXIDE
     Indication: PRODUCT USED FOR UNKNOWN INDICATION
     Route: 065
     Dates: end: 20190716
  11. DABRAFENIB [Suspect]
     Active Substance: DABRAFENIB
     Route: 065
     Dates: start: 20190729

REACTIONS (39)
  - Metastases to peritoneum [Recovered/Resolved]
  - Malignant mesenteric neoplasm [Recovered/Resolved]
  - Metastases to stomach [Recovered/Resolved]
  - Back pain [Recovered/Resolved]
  - Paraesthesia [Recovered/Resolved]
  - Adrenal gland cancer metastatic [Recovered/Resolved]
  - C-reactive protein increased [Unknown]
  - Small intestine carcinoma [Recovered/Resolved]
  - Myalgia [Recovered/Resolved]
  - Pain [Recovered/Resolved]
  - Blood lactate dehydrogenase increased [Unknown]
  - Intervertebral disc degeneration [Unknown]
  - Pyrexia [Recovered/Resolved]
  - Pyrexia [Recovered/Resolved]
  - Renal cyst [Unknown]
  - General physical condition abnormal [Recovered/Resolved]
  - Abdominal lymphadenopathy [Recovered/Resolved]
  - Weight decreased [Unknown]
  - Lymphadenopathy [Recovered/Resolved]
  - Abdominal pain [Recovered/Resolved]
  - Oedema [Recovered/Resolved]
  - Malignant mesenteric neoplasm [Recovered/Resolved]
  - Metastases to liver [Recovered/Resolved]
  - Blood prolactin increased [Unknown]
  - Dyspepsia [Recovered/Resolved]
  - Metastases to heart [Recovered/Resolved]
  - Metastases to lung [Recovered/Resolved]
  - B-cell lymphoma [Recovered/Resolved]
  - Hypoaesthesia [Recovered/Resolved]
  - Ureteral disorder [Recovered/Resolved]
  - Rectal polyp [Recovered/Resolved]
  - Gastrointestinal disorder [Recovered/Resolved]
  - Malaise [Recovered/Resolved]
  - Gastrointestinal inflammation [Recovered/Resolved]
  - Abdominal pain [Recovered/Resolved]
  - Jejunal ulcer perforation [Recovered/Resolved]
  - Gastrointestinal disorder [Recovered/Resolved]
  - Hyperreflexia [Recovered/Resolved]
  - Vomiting [Recovered/Resolved]

NARRATIVE: CASE EVENT DATE: 20190114
